FAERS Safety Report 4526387-7 (Version None)
Quarter: 2004Q4

REPORT INFORMATION
  Report Type: 
  Country: None (occurrence: None)
  Receive Date: 20041214
  Receipt Date: 20041202
  Transmission Date: 20050328
  Serious: Yes (Other)
  Sender: FDA-Public Use
  Company Number: GB-BRISTOL-MYERS SQUIBB COMPANY-12781803

PATIENT
  Age: 62 Year
  Sex: Female
  Weight: 82 kg

DRUGS (5)
  1. PRAVASTATIN SODIUM [Suspect]
     Indication: HYPERLIPIDAEMIA
     Route: 048
     Dates: start: 20041007, end: 20041028
  2. BENDROFLUAZIDE [Concomitant]
     Indication: BLOOD PRESSURE INCREASED
     Dates: start: 19930308
  3. ASPIRIN [Concomitant]
     Indication: PROPHYLAXIS
     Dates: start: 20020629
  4. ATENOLOL [Concomitant]
     Indication: PROPHYLAXIS
     Dates: start: 20021119
  5. CO-DYDRAMOL [Concomitant]
     Indication: PROPHYLAXIS
     Dates: start: 19971019

REACTIONS (2)
  - MYALGIA [None]
  - MYOSITIS [None]
